FAERS Safety Report 24588699 (Version 1)
Quarter: 2024Q4

REPORT INFORMATION
  Report Type: Spontaneous
  Country: US (occurrence: None)
  Receive Date: 20241107
  Receipt Date: 20241107
  Transmission Date: 20250115
  Serious: No
  Sender: Public
  Company Number: None

PATIENT
  Sex: Female

DRUGS (1)
  1. PROLIA [Suspect]
     Active Substance: DENOSUMAB
     Indication: Senile osteoporosis
     Dosage: 60MG  EVERY 6 MONTHS SUB-Q?
     Route: 058
     Dates: start: 202403

REACTIONS (4)
  - Blood pressure increased [None]
  - Injection site pain [None]
  - Injection site pruritus [None]
  - Injection site irritation [None]
